FAERS Safety Report 5976039-1 (Version None)
Quarter: 2008Q4

REPORT INFORMATION
  Report Type: 
  Country: None (occurrence: None)
  Receive Date: 20081202
  Receipt Date: 20081125
  Transmission Date: 20090506
  Serious: Yes (Life-Threatening, Hospitalization, Other)
  Sender: FDA-Public Use
  Company Number: ZA-ROCHE-598018

PATIENT
  Sex: Female
  Weight: 53 kg

DRUGS (2)
  1. KYTRIL [Suspect]
     Dosage: INDICATION: PRE-OP N+V
     Route: 065
     Dates: start: 20081021, end: 20081021
  2. MAXOLON [Concomitant]
     Dates: start: 20081021, end: 20081021

REACTIONS (2)
  - CARDIAC DISORDER [None]
  - MYOCARDIAL INFARCTION [None]
